FAERS Safety Report 9087350 (Version 1)
Quarter: 2013Q1

REPORT INFORMATION
  Report Type: Report from Study
  Country: US (occurrence: US)
  Receive Date: 20130131
  Receipt Date: 20130131
  Transmission Date: 20140127
  Serious: No
  Sender: FDA-Public Use
  Company Number: US-ABBOTT-12P-163-0966261-00

PATIENT
  Age: 48 Year
  Sex: Female
  Weight: 85.35 kg

DRUGS (5)
  1. HUMIRA [Suspect]
     Indication: RHEUMATOID ARTHRITIS
     Dates: start: 20120729
  2. HUMIRA [Suspect]
  3. TRAMADOL [Concomitant]
     Indication: PAIN
  4. NEXIUM [Concomitant]
     Indication: GASTROOESOPHAGEAL REFLUX DISEASE
  5. LYRICA [Concomitant]
     Indication: PAIN

REACTIONS (3)
  - Coeliac disease [Unknown]
  - Pain [Not Recovered/Not Resolved]
  - Myalgia [Unknown]
